FAERS Safety Report 6246585-4 (Version None)
Quarter: 2009Q2

REPORT INFORMATION
  Report Type: 
  Country: None (occurrence: None)
  Receive Date: 20090626
  Receipt Date: 20090622
  Transmission Date: 20091009
  Serious: Yes (Death)
  Sender: FDA-Public Use
  Company Number: DE-PFIZER INC-2009230152

PATIENT
  Age: 80 Year

DRUGS (8)
  1. EXEMESTANE [Suspect]
     Indication: BREAST CANCER
     Dosage: 1X/DAY
     Dates: start: 20050101
  2. DIURSAN [Concomitant]
     Indication: HYPERTENSION
     Dosage: UNK
     Dates: start: 19900101
  3. DILTIAZEM [Concomitant]
     Indication: HYPERTENSION
     Dosage: 90 MG, UNK
     Dates: start: 19900101
  4. L-THYROXIN ^HENNING BERLIN^ [Concomitant]
     Indication: HYPOTHYROIDISM
     Dosage: 100
     Dates: start: 19900101
  5. TRUSOPT [Concomitant]
     Indication: GLAUCOMA
     Dosage: UNK
     Route: 047
     Dates: start: 20000101
  6. CLONID-OPHTAL [Concomitant]
     Indication: CATARACT
     Dosage: 1/8%
     Route: 047
  7. ZENTRAMIN BASTIAN N [Concomitant]
     Dosage: AS NEEDED
  8. OPIPRAMOL HYDROCHLORIDE [Concomitant]
     Indication: GASTRIC CANCER
     Dosage: 50 MG, UNK
     Dates: start: 20090109

REACTIONS (1)
  - DEATH [None]
